FAERS Safety Report 6355309-1 (Version None)
Quarter: 2009Q3

REPORT INFORMATION
  Report Type: 
  Country: None (occurrence: None)
  Receive Date: 20090914
  Receipt Date: 20090903
  Transmission Date: 20100115
  Serious: Yes (Other)
  Sender: FDA-Public Use
  Company Number: PHEH2009US10346

PATIENT

DRUGS (1)
  1. DIOVAN [Suspect]
     Dosage: 320/25 MG

REACTIONS (1)
  - KNEE OPERATION [None]
